FAERS Safety Report 23263739 (Version 2)
Quarter: 2024Q1

REPORT INFORMATION
  Report Type: Spontaneous
  Country: US (occurrence: US)
  Receive Date: 20231205
  Receipt Date: 20240322
  Transmission Date: 20240410
  Serious: No
  Sender: FDA-Public Use
  Company Number: US-SA-SAC20231124000963

PATIENT
  Age: 37 Year
  Sex: Female
  Weight: 77.4 kg

DRUGS (3)
  1. DUPIXENT [Suspect]
     Active Substance: DUPILUMAB
     Indication: Dermatitis allergic
     Dosage: 300 MG, 1X
     Route: 058
  2. DUPIXENT [Suspect]
     Active Substance: DUPILUMAB
     Dosage: 300 MG, QOW
     Route: 058
  3. PREDNISONE [Suspect]
     Active Substance: PREDNISONE

REACTIONS (5)
  - Eczema [Not Recovered/Not Resolved]
  - Injection site pain [Unknown]
  - Dermatitis allergic [Unknown]
  - Condition aggravated [Unknown]
  - Incorrect dose administered [Unknown]
